FAERS Safety Report 9963050 (Version 6)
Quarter: 2016Q1

REPORT INFORMATION
  Report Type: Report from Study
  Country: US (occurrence: US)
  Receive Date: 20140305
  Receipt Date: 20160202
  Transmission Date: 20160526
  Serious: Yes (Other)
  Sender: FDA-Public Use
  Company Number: US-SANOFI-AVENTIS-2013SA045889

PATIENT
  Age: 61 Year
  Sex: Female
  Weight: 90.71 kg

DRUGS (7)
  1. PREVACID [Concomitant]
     Active Substance: LANSOPRAZOLE
  2. METFORMIN [Concomitant]
     Active Substance: METFORMIN HYDROCHLORIDE
     Indication: DIABETES MELLITUS
  3. ASPIRIN ^BAYER^ [Concomitant]
     Active Substance: ASPIRIN
     Indication: CARDIAC DISORDER
  4. METOPROLOL. [Concomitant]
     Active Substance: METOPROLOL
  5. AUBAGIO [Suspect]
     Active Substance: TERIFLUNOMIDE
     Indication: MULTIPLE SCLEROSIS
     Route: 048
     Dates: start: 20130410
  6. VITAMIN D3 [Concomitant]
     Active Substance: CHOLECALCIFEROL
  7. HYDROCHLOROTHIAZIDE. [Concomitant]
     Active Substance: HYDROCHLOROTHIAZIDE
     Indication: CARDIAC DISORDER

REACTIONS (7)
  - Musculoskeletal stiffness [Unknown]
  - Fall [Unknown]
  - Wrist fracture [Unknown]
  - Myalgia [Unknown]
  - Arthritis [Unknown]
  - Central nervous system lesion [Unknown]
  - Diarrhoea [Recovered/Resolved]

NARRATIVE: CASE EVENT DATE: 20130411
